FAERS Safety Report 8048093-7 (Version None)
Quarter: 2012Q1

REPORT INFORMATION
  Report Type: 
  Country: None (occurrence: None)
  Receive Date: 20120117
  Receipt Date: 20120103
  Transmission Date: 20120608
  Serious: Yes (Other)
  Sender: FDA-Public Use
  Company Number: US-RANBAXY-2012RR-51842

PATIENT
  Sex: Female
  Weight: 75 kg

DRUGS (10)
  1. LISINOPRIL [Suspect]
     Indication: HYPERTENSION
     Dosage: UNK
     Route: 065
  2. TRICOR [Suspect]
     Indication: BLOOD CHOLESTEROL INCREASED
     Dosage: UNK
     Route: 065
     Dates: start: 20090101, end: 20110101
  3. CALCIUM PLUS B [Concomitant]
     Indication: SUPPLEMENTATION THERAPY
     Dosage: UNK
     Route: 065
  4. NORVASC [Suspect]
     Indication: HYPERTENSION
     Dosage: UNK
     Route: 065
  5. DEPAKOTE ER [Suspect]
     Indication: BIPOLAR DISORDER
     Dosage: UNK
     Route: 065
     Dates: start: 19960101
  6. TRILIPIX [Suspect]
     Indication: BLOOD CHOLESTEROL INCREASED
     Dosage: UNK
     Route: 065
     Dates: start: 20110101, end: 20111001
  7. EZETIMIBE [Concomitant]
     Indication: BLOOD CHOLESTEROL INCREASED
     Dosage: UNK
     Route: 065
  8. LIPITAC [Concomitant]
     Indication: BLOOD CHOLESTEROL INCREASED
     Dosage: UNK
     Route: 065
  9. OMEPRAZOLE [Concomitant]
     Indication: GASTROOESOPHAGEAL REFLUX DISEASE
     Dosage: UNK
     Route: 065
  10. ESTROGENS CONJUGATED [Concomitant]
     Indication: HORMONE REPLACEMENT THERAPY
     Dosage: UNK
     Route: 065

REACTIONS (15)
  - WEIGHT DECREASED [None]
  - CATARACT [None]
  - VOMITING [None]
  - NEUROPATHY PERIPHERAL [None]
  - TREMOR [None]
  - WRIST FRACTURE [None]
  - ANKLE FRACTURE [None]
  - EYE DISORDER [None]
  - DIZZINESS [None]
  - FALL [None]
  - VISUAL ACUITY REDUCED [None]
  - BLOOD PRESSURE DECREASED [None]
  - THYROID NEOPLASM [None]
  - PAIN IN EXTREMITY [None]
  - DRUG INEFFECTIVE [None]
